FAERS Safety Report 14984096 (Version 1)
Quarter: 2018Q2

REPORT INFORMATION
  Report Type: Spontaneous
  Country: US (occurrence: US)
  Receive Date: 20180607
  Receipt Date: 20180607
  Transmission Date: 20180711
  Serious: No
  Sender: FDA-Public Use
  Company Number: US-MYLANLABS-2018M1034730

PATIENT
  Age: 22 Year
  Sex: Male
  Weight: 79.4 kg

DRUGS (5)
  1. LATUDA [Interacting]
     Active Substance: LURASIDONE HYDROCHLORIDE
     Indication: BIPOLAR DISORDER
     Dosage: ONE 40 MG AND HALF 20 MG
     Route: 048
     Dates: start: 201804
  2. LATUDA [Interacting]
     Active Substance: LURASIDONE HYDROCHLORIDE
     Dosage: 20 MG, QD
     Route: 048
     Dates: start: 201804, end: 201804
  3. LATUDA [Interacting]
     Active Substance: LURASIDONE HYDROCHLORIDE
     Dosage: 40 MG, QD
     Route: 048
     Dates: start: 201804
  4. OLANZAPINE. [Interacting]
     Active Substance: OLANZAPINE
     Indication: BIPOLAR DISORDER
     Dosage: UNK
  5. LITHIUM. [Suspect]
     Active Substance: LITHIUM
     Indication: BIPOLAR DISORDER
     Dosage: 900 MG, BID, HS

REACTIONS (4)
  - Drug interaction [Unknown]
  - Strabismus [Unknown]
  - Hyperventilation [Unknown]
  - Blepharospasm [Unknown]

NARRATIVE: CASE EVENT DATE: 201804
